FAERS Safety Report 7596722-4 (Version None)
Quarter: 2011Q3

REPORT INFORMATION
  Report Type: 
  Country: None (occurrence: None)
  Receive Date: 20110708
  Receipt Date: 20110701
  Transmission Date: 20111222
  Serious: Yes (Death)
  Sender: FDA-Public Use
  Company Number: US-PFIZER INC-2011150093

PATIENT
  Sex: Male

DRUGS (6)
  1. ALLOPURINOL [Concomitant]
     Dosage: 100 MG, UNK
  2. SUTENT [Suspect]
     Dosage: 37.5 MG, DAILY FOR 14 DAYS THEN OFF FOR 7 DAYS (1-12.5MG + 1-25MG CAPUSULE)
  3. LEVOTHYROXINE [Concomitant]
     Dosage: 25 UG, UNK
  4. LORAZEPAM [Concomitant]
     Dosage: 0.5 MG, UNK
  5. AMLODIPINE [Concomitant]
     Dosage: 2.5 MG, UNK
  6. ADVIL LIQUI-GELS [Concomitant]
     Dosage: 200 MG, UNK

REACTIONS (1)
  - CARDIOVASCULAR DISORDER [None]
